FAERS Safety Report 10625769 (Version 1)
Quarter: 2014Q4

REPORT INFORMATION
  Report Type: Spontaneous
  Country: US (occurrence: None)
  Receive Date: 20141203
  Receipt Date: 20141203
  Transmission Date: 20150529
  Serious: No
  Sender: FDA-Public Use
  Company Number: ALL1-2009-03433

PATIENT
  Age: 16 Year
  Sex: Male
  Weight: 59.9 kg

DRUGS (1)
  1. DAYTRANA [Suspect]
     Active Substance: METHYLPHENIDATE
     Indication: ATTENTION DEFICIT/HYPERACTIVITY DISORDER
     Dosage: 30 MG, 1X/DAY:QD, TRANSDERMAL?
     Route: 062
     Dates: start: 2006, end: 2008

REACTIONS (2)
  - Vitiligo [None]
  - Off label use [None]

NARRATIVE: CASE EVENT DATE: 2008
